FAERS Safety Report 18612386 (Version 3)
Quarter: 2021Q4

REPORT INFORMATION
  Report Type: Spontaneous
  Country: US (occurrence: US)
  Receive Date: 20201214
  Receipt Date: 20211115
  Transmission Date: 20220303
  Serious: Yes (Death, Other)
  Sender: FDA-Public Use
  Company Number: US-PFIZER INC-2019558683

PATIENT
  Age: 80 Year
  Sex: Female
  Weight: 70.76 kg

DRUGS (8)
  1. PRISTIQ EXTENDED-RELEASE [Suspect]
     Active Substance: DESVENLAFAXINE SUCCINATE
     Indication: Obsessive-compulsive disorder
     Dosage: 150 MG, 1X/DAY [50MG AROUND 11- 11:30AM, 100MG WITH DINNER]
     Route: 048
     Dates: start: 2015
  2. PRISTIQ EXTENDED-RELEASE [Suspect]
     Active Substance: DESVENLAFAXINE SUCCINATE
     Indication: Major depression
  3. CARVEDILOL [Concomitant]
     Active Substance: CARVEDILOL
     Indication: Blood pressure abnormal
     Dosage: UNK, 2X/DAY
     Route: 048
  4. ASPIRIN [Concomitant]
     Active Substance: ASPIRIN
     Dosage: 81 MG, 1X/DAY
     Route: 048
  5. OMEGA-3 FATTY ACIDS [Concomitant]
     Active Substance: OMEGA-3 FATTY ACIDS
     Indication: Supplementation therapy
     Dosage: UNK, 1X/DAY
     Route: 048
  6. INOSITOL [Concomitant]
     Active Substance: INOSITOL
     Indication: Disturbance in attention
     Dosage: UNK, 1X/DAY
     Route: 048
  7. CLONAZEPAM [Concomitant]
     Active Substance: CLONAZEPAM
     Indication: Obsessive-compulsive disorder
     Dosage: UNK
     Dates: start: 201510
  8. DONEPEZIL [Concomitant]
     Active Substance: DONEPEZIL
     Indication: Memory impairment
     Dosage: UNK
     Dates: start: 202006

REACTIONS (3)
  - Death [Fatal]
  - Dementia [Unknown]
  - Anaemia [Unknown]

NARRATIVE: CASE EVENT DATE: 20210901
